FAERS Safety Report 7034214-1 (Version None)
Quarter: 2010Q4

REPORT INFORMATION
  Report Type: 
  Country: None (occurrence: None)
  Receive Date: 20101008
  Receipt Date: 20100929
  Transmission Date: 20110411
  Serious: Yes (Hospitalization)
  Sender: FDA-Public Use
  Company Number: US-BIOGENIDEC-2009BI001741

PATIENT
  Age: 53 Year
  Sex: Male

DRUGS (5)
  1. AVONEX [Suspect]
     Indication: MULTIPLE SCLEROSIS
     Route: 030
     Dates: start: 20041008, end: 20041101
  2. AVONEX [Suspect]
     Route: 030
     Dates: start: 20041101, end: 20081201
  3. AVONEX [Suspect]
     Route: 030
     Dates: start: 20081201, end: 20090101
  4. AVONEX [Suspect]
     Route: 030
     Dates: start: 20090101, end: 20100926
  5. TYSABRI [Concomitant]
     Indication: MULTIPLE SCLEROSIS
     Route: 042
     Dates: start: 20050201, end: 20050201

REACTIONS (14)
  - BACK INJURY [None]
  - BACK PAIN [None]
  - FALL [None]
  - FATIGUE [None]
  - HANGOVER [None]
  - INFLUENZA LIKE ILLNESS [None]
  - INSOMNIA [None]
  - LOSS OF CONSCIOUSNESS [None]
  - MUSCLE SPASMS [None]
  - NECK INJURY [None]
  - NECK PAIN [None]
  - NERVE COMPRESSION [None]
  - NERVOUS SYSTEM DISORDER [None]
  - PAIN OF SKIN [None]
